FAERS Safety Report 9118876 (Version 2)
Quarter: 2013Q2

REPORT INFORMATION
  Report Type: Report from Study
  Country: ES (occurrence: ES)
  Receive Date: 20130226
  Receipt Date: 20130531
  Transmission Date: 20140414
  Serious: Yes (Hospitalization)
  Sender: FDA-Public Use
  Company Number: PHHO2013ES003044

PATIENT
  Age: 74 Year
  Sex: Female
  Weight: 67.8 kg

DRUGS (9)
  1. AFINITOR [Suspect]
     Indication: BREAST CANCER METASTATIC
     Dosage: 10 MG, QD
     Route: 048
     Dates: start: 20130212, end: 20130219
  2. EXEMESTANE [Suspect]
     Indication: BREAST CANCER METASTATIC
     Dosage: 25 MG, QD
     Route: 048
     Dates: start: 20130212, end: 20130219
  3. FENTANILO//FENTANYL [Concomitant]
     Indication: PAIN
     Dosage: 75 UG, Q72H
     Dates: start: 20130416, end: 20130522
  4. OMEPRAZOLE [Concomitant]
     Indication: PROPHYLAXIS
     Dosage: 20 MG, QD (20 MG/24 H)
     Dates: start: 20130416, end: 20130528
  5. SIMVASTATIN [Concomitant]
     Indication: HYPERCHOLESTEROLAEMIA
     Dosage: 20 MG, QD (20 MG/24 H)
     Dates: start: 20130416, end: 20130528
  6. PREGABALIN [Concomitant]
     Indication: PAIN
     Dosage: 75 MG, Q12H
     Dates: start: 20130416, end: 20130528
  7. FUROSEMIDE [Concomitant]
     Indication: DIURETIC THERAPY
     Dosage: 40 MG, MONDAY, WEDNESDAY, FRIDAY
     Dates: start: 20130416, end: 20130528
  8. DEFLAZACORT [Concomitant]
     Indication: ANTIINFLAMMATORY THERAPY
     Dosage: 30 MG, MONDAY, WEDNESDAY, FRIDAY
     Dates: start: 20130416, end: 20130527
  9. CO-TRIMOXAZOLE [Concomitant]
     Indication: INFECTION
     Dosage: 800 MG, MONDAY, WEDNEDAY, FRIDAY
     Dates: start: 20130416, end: 20130527

REACTIONS (5)
  - Dysphagia [Not Recovered/Not Resolved]
  - Gastric ulcer [Recovering/Resolving]
  - Gastrooesophageal reflux disease [Recovering/Resolving]
  - Hiatus hernia [Recovering/Resolving]
  - Gastrointestinal haemorrhage [Recovering/Resolving]
